FAERS Safety Report 24686665 (Version 1)
Quarter: 2024Q4

REPORT INFORMATION
  Report Type: Spontaneous
  Country: US (occurrence: US)
  Receive Date: 20241202
  Receipt Date: 20241202
  Transmission Date: 20250114
  Serious: Yes (Hospitalization)
  Sender: MYLAN
  Company Number: US-MYLANLABS-2024M1105373

PATIENT
  Age: 36 Year
  Sex: Female

DRUGS (7)
  1. SODIUM CHLORIDE [Suspect]
     Active Substance: SODIUM CHLORIDE
     Indication: Hyperemesis gravidarum
     Dosage: UNK
     Route: 042
  2. HYDROCORTISONE [Suspect]
     Active Substance: HYDROCORTISONE
     Indication: Gestational hyperthyroidism
     Dosage: UNK
     Route: 065
  3. METHIMAZOLE [Suspect]
     Active Substance: METHIMAZOLE
     Indication: Gestational hyperthyroidism
     Dosage: UNK
     Route: 065
  4. PROPRANOLOL [Suspect]
     Active Substance: PROPRANOLOL HYDROCHLORIDE
     Indication: Gestational hyperthyroidism
     Dosage: UNK
     Route: 065
  5. THIAMINE [Suspect]
     Active Substance: THIAMINE
     Indication: Wernicke^s encephalopathy
     Dosage: 500 MILLIGRAM, Q8H
     Route: 042
  6. THIAMINE [Suspect]
     Active Substance: THIAMINE
     Indication: Wernicke^s encephalopathy
     Dosage: 500 MILLIGRAM, QD
     Route: 048
  7. DEXTROSE [Suspect]
     Active Substance: DEXTROSE MONOHYDRATE
     Indication: Hyperemesis gravidarum
     Dosage: UNK
     Route: 042

REACTIONS (4)
  - Vitamin B1 deficiency [Recovering/Resolving]
  - Wernicke^s encephalopathy [Recovering/Resolving]
  - Maternal exposure during pregnancy [Recovered/Resolved]
  - Normal newborn [Recovered/Resolved]
